FAERS Safety Report 7214072-2 (Version None)
Quarter: 2011Q1

REPORT INFORMATION
  Report Type: 
  Country: None (occurrence: None)
  Receive Date: 20110107
  Receipt Date: 20101230
  Transmission Date: 20110831
  Serious: No
  Sender: FDA-Public Use
  Company Number: US-BIOGENIDEC-2011BI000083

PATIENT
  Age: 51 Year
  Sex: Female

DRUGS (2)
  1. AVONEX [Suspect]
     Route: 030
     Dates: start: 20100901
  2. AVONEX [Suspect]
     Indication: MULTIPLE SCLEROSIS
     Route: 030
     Dates: start: 20080327, end: 20100801

REACTIONS (5)
  - MUSCULAR WEAKNESS [None]
  - SKIN DISCOLOURATION [None]
  - CYSTITIS [None]
  - PAIN IN EXTREMITY [None]
  - BLOOD URINE PRESENT [None]
